FAERS Safety Report 6356186-5 (Version None)
Quarter: 2009Q3

REPORT INFORMATION
  Report Type: 
  Country: None (occurrence: None)
  Receive Date: 20090915
  Receipt Date: 20090903
  Transmission Date: 20100115
  Serious: Yes (Hospitalization)
  Sender: FDA-Public Use
  Company Number: US-BAYER-200932160NA

PATIENT
  Age: 30 Year
  Sex: Female

DRUGS (1)
  1. MIRENA [Suspect]
     Indication: CONTRACEPTION
     Dosage: CONTINUOUS
     Route: 015
     Dates: start: 20080331, end: 20090313

REACTIONS (3)
  - ABDOMINAL PAIN LOWER [None]
  - COMPLICATION OF DEVICE INSERTION [None]
  - UTERINE RUPTURE [None]
